FAERS Safety Report 9169105 (Version 2)
Quarter: 2013Q2

REPORT INFORMATION
  Report Type: Report from Study
  Country: US (occurrence: US)
  Receive Date: 20130318
  Receipt Date: 20130417
  Transmission Date: 20140414
  Serious: Yes (Death)
  Sender: FDA-Public Use
  Company Number: US-ROCHE-1202844

PATIENT
  Sex: Female
  Weight: 67.65 kg

DRUGS (1)
  1. VEMURAFENIB [Suspect]
     Indication: METASTATIC MALIGNANT MELANOMA
     Route: 065

REACTIONS (4)
  - Metastatic malignant melanoma [Fatal]
  - Skin lesion [Unknown]
  - Fatigue [Unknown]
  - Nausea [Unknown]
